FAERS Safety Report 7771942 (Version 2)
Quarter: 2012Q4

REPORT INFORMATION
  Report Type: 
  Country: FR (occurrence: FR)
  Receive Date: 20110124
  Receipt Date: 20121214
  Transmission Date: 20130627
  Serious: Yes (Life-Threatening)
  Sender: FDA-Public Use
  Company Number: FR-ASTRAZENECA-2011SE03549

PATIENT
  Age: 20784 Day
  Sex: Male

DRUGS (3)
  1. CELOCURINE [Suspect]
     Indication: GENERAL ANAESTHESIA
     Route: 042
     Dates: start: 20101113, end: 20101113
  2. DIPRIVAN [Suspect]
     Indication: GENERAL ANAESTHESIA
     Route: 042
     Dates: start: 20101113, end: 20101113
  3. PLAVIX [Concomitant]

REACTIONS (4)
  - Erythema [Recovered/Resolved]
  - Bronchospasm [Recovered/Resolved]
  - Circulatory collapse [Recovered/Resolved]
  - Anaphylactic shock [Recovered/Resolved]
